FAERS Safety Report 8055198-3 (Version None)
Quarter: 2011Q4

REPORT INFORMATION
  Report Type: 
  Country: None (occurrence: None)
  Receive Date: 20111216
  Receipt Date: 20110829
  Transmission Date: 20120403
  Serious: Yes (Hospitalization)
  Sender: FDA-Public Use
  Company Number: 294286USA

PATIENT
  Age: 49 Year
  Sex: Female
  Weight: 136 kg

DRUGS (2)
  1. PARAGARD T 380A [Suspect]
     Indication: CONTRACEPTION
     Dosage: I.U.
     Dates: start: 20110714
  2. LISINOPRIL [Concomitant]

REACTIONS (4)
  - MUSCLE SPASMS [None]
  - PAIN [None]
  - DEVICE EXPULSION [None]
  - VAGINAL HAEMORRHAGE [None]
